FAERS Safety Report 9400343 (Version 3)
Quarter: 2013Q3

REPORT INFORMATION
  Report Type: Spontaneous
  Country: US (occurrence: US)
  Receive Date: 20130715
  Receipt Date: 20130823
  Transmission Date: 20140515
  Serious: Yes (Other)
  Sender: FDA-Public Use
  Company Number: US-PFIZER INC-2013203179

PATIENT
  Age: 95 Year
  Sex: Female
  Weight: 40.36 kg

DRUGS (5)
  1. CADUET [Suspect]
     Indication: HYPERTENSION
     Dosage: 5 MG/20 MG, ONE-HALF TABLET DAILY
  2. CADUET [Suspect]
     Indication: BLOOD CHOLESTEROL ABNORMAL
  3. XALATAN [Suspect]
     Indication: GLAUCOMA
     Dosage: ONE DROP IN BOTH EYES EVERY NIGHT, FOR GLAUCOMA
     Route: 047
     Dates: start: 20121101, end: 20130701
  4. COREG [Concomitant]
     Indication: HYPERTENSION
     Dosage: 12.5 MG, 2X/DAY
  5. LASIX [Concomitant]
     Indication: HYPERTENSION
     Dosage: 20 MG, 1X/DAY

REACTIONS (1)
  - Delirium [Unknown]
